FAERS Safety Report 12411545 (Version 2)
Quarter: 2016Q2

REPORT INFORMATION
  Report Type: Spontaneous
  Country: JP (occurrence: JP)
  Receive Date: 20160527
  Receipt Date: 20160613
  Transmission Date: 20160815
  Serious: Yes (Hospitalization, Other)
  Sender: FDA-Public Use
  Company Number: JP-GLAXOSMITHKLINE-JP2016JPN072984

PATIENT
  Age: 79 Year
  Sex: Male
  Weight: 45 kg

DRUGS (7)
  1. PREDNISOLONE. [Concomitant]
     Active Substance: PREDNISOLONE
     Dosage: 60 MG, 1D
  2. PRANLUKAST [Suspect]
     Active Substance: PRANLUKAST
     Indication: ASTHMA
     Dosage: UNK
     Route: 048
  3. PREDNISOLONE. [Concomitant]
     Active Substance: PREDNISOLONE
     Dosage: 10 MG, 1D
  4. SERETIDE [Suspect]
     Active Substance: FLUTICASONE PROPIONATE\SALMETEROL XINAFOATE
     Indication: ASTHMA
     Dosage: UNK UNK, U
     Route: 055
  5. PREDNISOLONE. [Concomitant]
     Active Substance: PREDNISOLONE
     Indication: ASTHMA
     Dosage: 2.5-10MG, 1D
  6. PREDNISOLONE. [Concomitant]
     Active Substance: PREDNISOLONE
     Dosage: UNK UNK, 1D
  7. PREDNISOLONE. [Concomitant]
     Active Substance: PREDNISOLONE
     Dosage: 40 MG, 1D

REACTIONS (18)
  - Allergic granulomatous angiitis [Recovered/Resolved with Sequelae]
  - Productive cough [Recovering/Resolving]
  - Muscular weakness [Recovering/Resolving]
  - Bronchial wall thickening [Recovering/Resolving]
  - Fluid retention [Recovering/Resolving]
  - Mononeuropathy multiplex [Recovering/Resolving]
  - Pyrexia [Recovering/Resolving]
  - Hypoaesthesia [Recovering/Resolving]
  - Cough [Recovering/Resolving]
  - Chronic sinusitis [Recovering/Resolving]
  - Neuropathy peripheral [Recovering/Resolving]
  - Asthma [Recovering/Resolving]
  - Lacunar infarction [Recovering/Resolving]
  - Dyspnoea exertional [Recovering/Resolving]
  - Paranasal sinus mucosal hypertrophy [Recovering/Resolving]
  - Pneumonia [Recovering/Resolving]
  - Illusion [Recovering/Resolving]
  - Rales [Recovering/Resolving]
